FAERS Safety Report 8164627-6 (Version None)
Quarter: 2012Q1

REPORT INFORMATION
  Report Type: 
  Country: None (occurrence: None)
  Receive Date: 20120227
  Receipt Date: 20120215
  Transmission Date: 20120608
  Serious: Yes (Hospitalization)
  Sender: FDA-Public Use
  Company Number: US-BIOGENIDEC-2012BI003344

PATIENT
  Age: 51 Year
  Sex: Female

DRUGS (1)
  1. TYSABRI [Suspect]
     Indication: MULTIPLE SCLEROSIS
     Route: 042
     Dates: start: 20110804, end: 20111004

REACTIONS (10)
  - ARTHRITIS [None]
  - URINARY TRACT INFECTION [None]
  - MYALGIA [None]
  - OESOPHAGEAL SPASM [None]
  - ALOPECIA [None]
  - NAUSEA [None]
  - CELLULITIS [None]
  - PAIN [None]
  - OEDEMA PERIPHERAL [None]
  - PYREXIA [None]
